FAERS Safety Report 14475476 (Version 1)
Quarter: 2018Q1

REPORT INFORMATION
  Report Type: Spontaneous
  Country: US (occurrence: US)
  Receive Date: 20180131
  Receipt Date: 20180131
  Transmission Date: 20180509
  Serious: Yes (Disabling)
  Sender: FDA-Public Use
  Company Number: None

PATIENT
  Age: 56 Year
  Sex: Male
  Weight: 74.25 kg

DRUGS (2)
  1. CENTRUM MULTI VITAMIN [Concomitant]
  2. REPATHA [Suspect]
     Active Substance: EVOLOCUMAB
     Indication: BLOOD CHOLESTEROL ABNORMAL
     Dosage: ?          QUANTITY:1 INJECTION(S);OTHER FREQUENCY:1X MONTH;OTHER ROUTE:INJEXTED IN LEG?
     Dates: start: 20171214, end: 20180114

REACTIONS (4)
  - Myopathy [None]
  - Muscle tightness [None]
  - Hyperreflexia [None]
  - Hypersensitivity [None]

NARRATIVE: CASE EVENT DATE: 20171215
